FAERS Safety Report 12619596 (Version 1)
Quarter: 2016Q3

REPORT INFORMATION
  Report Type: Spontaneous
  Country: US (occurrence: US)
  Receive Date: 20160803
  Receipt Date: 20160803
  Transmission Date: 20161109
  Serious: Yes (Death)
  Sender: FDA-Public Use
  Company Number: US-PFIZER INC-2016370241

PATIENT
  Age: 69 Year
  Sex: Female

DRUGS (1)
  1. SUTENT [Suspect]
     Active Substance: SUNITINIB MALATE
     Dosage: 12.5 MG, CYCLIC (THREE TIMES A DAY FOR 28 DAYS THEN 14 DAYS OFF)
     Route: 048
     Dates: start: 20160502, end: 20160729

REACTIONS (1)
  - Death [Fatal]

NARRATIVE: CASE EVENT DATE: 20160729
